FAERS Safety Report 5320439-X (Version None)
Quarter: 2007Q1

REPORT INFORMATION
  Report Type: 
  Country: None (occurrence: None)
  Receive Date: 20070214
  Receipt Date: 20060310
  Transmission Date: 20070707
  Serious: Yes (Life-Threatening)
  Sender: FDA-Public Use
  Company Number: 144896USA

PATIENT
  Age: 36 Year
  Sex: Female

DRUGS (5)
  1. FLUOXETINE HYDROCHLORIDE [Suspect]
     Indication: DEPRESSION
     Dosage: (20 MG)
     Dates: start: 20060307, end: 20060307
  2. VENLAFAXIINE HCL [Concomitant]
  3. ALPRAZOLAM [Concomitant]
  4. LAMOTRIGINE [Concomitant]
  5. LEXAPRO [Concomitant]

REACTIONS (6)
  - DISTURBANCE IN ATTENTION [None]
  - DYSPNOEA [None]
  - HYPERSENSITIVITY [None]
  - PHARYNGEAL OEDEMA [None]
  - TREMOR [None]
  - VISION BLURRED [None]
